FAERS Safety Report 8546430-8 (Version None)
Quarter: 2012Q3

REPORT INFORMATION
  Report Type: 
  Country: None (occurrence: None)
  Receive Date: 20120727
  Receipt Date: 20120109
  Transmission Date: 20120928
  Serious: No
  Sender: FDA-Public Use
  Company Number: US-ASTRAZENECA-2012SE01557

PATIENT
  Age: 27 Year
  Sex: Male
  Weight: 74.8 kg

DRUGS (12)
  1. SEROQUEL [Suspect]
     Route: 048
  2. SEROQUEL [Suspect]
     Dosage: 150 MG AT NIGHT FOR  WEEK
     Route: 048
  3. SEROQUEL [Suspect]
     Route: 048
  4. SEROQUEL [Suspect]
     Dosage: 150 MG EARLY DURING OR AFTER DINNER
     Route: 048
  5. SEROQUEL [Suspect]
     Dosage: 100 MG IN MORNING AND 150 MG AT NIGHT
     Route: 048
  6. SEROQUEL [Suspect]
     Indication: ASPERGER'S DISORDER
     Route: 048
     Dates: start: 20101201
  7. SEROQUEL [Suspect]
     Route: 048
  8. SEROQUEL [Suspect]
     Dosage: 150 MG AT NIGHT FOR  WEEK
     Route: 048
  9. SEROQUEL [Suspect]
     Dosage: 100 MG IN MORNING AND 150 MG AT NIGHT
     Route: 048
  10. SEROQUEL [Suspect]
     Route: 048
  11. SEROQUEL [Suspect]
     Indication: MOOD SWINGS
     Route: 048
     Dates: start: 20101201
  12. SEROQUEL [Suspect]
     Dosage: 150 MG EARLY DURING OR AFTER DINNER
     Route: 048

REACTIONS (12)
  - DEHYDRATION [None]
  - SOMNOLENCE [None]
  - BALANCE DISORDER [None]
  - HYPERGLYCAEMIA [None]
  - OFF LABEL USE [None]
  - HUNGER [None]
  - MIDDLE INSOMNIA [None]
  - DRUG PRESCRIBING ERROR [None]
  - DRY MOUTH [None]
  - HYPOGLYCAEMIA [None]
  - SLEEP DISORDER [None]
  - FOOD CRAVING [None]
